FAERS Safety Report 6301432-7 (Version None)
Quarter: 2009Q3

REPORT INFORMATION
  Report Type: 
  Country: None (occurrence: None)
  Receive Date: 20090806
  Receipt Date: 20090806
  Transmission Date: 20100115
  Serious: No
  Sender: FDA-Public Use
  Company Number: None

PATIENT

DRUGS (2)
  1. OXYTOCIN [Suspect]
     Indication: LABOUR STIMULATION
  2. PHENYLEPHRINE [Suspect]

REACTIONS (2)
  - INTERCEPTED MEDICATION ERROR [None]
  - PRODUCT LABEL CONFUSION [None]
